FAERS Safety Report 6639131-4 (Version None)
Quarter: 2010Q1

REPORT INFORMATION
  Report Type: 
  Country: None (occurrence: None)
  Receive Date: 20100312
  Receipt Date: 20100301
  Transmission Date: 20100710
  Serious: Yes (Death)
  Sender: FDA-Public Use
  Company Number: WAES 1003USA01319

PATIENT

DRUGS (7)
  1. DECADRON [Suspect]
     Dosage: 40 MG/DAILY
  2. BORTEZOMIB [Suspect]
     Dosage: 1.3 MG/M[2]
  3. DOXORUBICIN HCL [Suspect]
     Dosage: 30 MG/M[2]
  4. MELPHALAN HYDROCHLORIDE [Suspect]
     Dosage: 100 MG/[2]
  5. LENALIDOMIDE [Suspect]
     Dosage: 10 MG/DAILY
  6. LENALIDOMIDE [Suspect]
     Dosage: 25 MG/DAILY
  7. PREDNISONE [Suspect]
     Dosage: 50 MG

REACTIONS (14)
  - ANAEMIA [None]
  - CONSTIPATION [None]
  - DIVERTICULITIS [None]
  - EMBOLISM [None]
  - FATIGUE [None]
  - HAEMORRHAGE [None]
  - NERVOUS SYSTEM DISORDER [None]
  - NEUROPATHY PERIPHERAL [None]
  - NEUTROPENIA [None]
  - PNEUMONIA [None]
  - PULMONARY EMBOLISM [None]
  - PYREXIA [None]
  - SEPTIC SHOCK [None]
  - THROMBOCYTOPENIA [None]
